FAERS Safety Report 8870554 (Version 1)
Quarter: 2012Q4

REPORT INFORMATION
  Report Type: Spontaneous
  Country: US (occurrence: None)
  Receive Date: 20121026
  Receipt Date: 20121026
  Transmission Date: 20130627
  Serious: Yes (Life-Threatening)
  Sender: FDA-Public Use
  Company Number: None

PATIENT
  Age: 64 Year
  Sex: Female
  Weight: 63.5 kg

DRUGS (1)
  1. LEVAQUIN [Suspect]
     Indication: KIDNEY STONE
     Dates: start: 20121017, end: 20121021

REACTIONS (7)
  - Nausea [None]
  - Vomiting [None]
  - Headache [None]
  - Depression [None]
  - Anxiety [None]
  - Nightmare [None]
  - Insomnia [None]
